FAERS Safety Report 6018766-6 (Version None)
Quarter: 2008Q4

REPORT INFORMATION
  Report Type: 
  Country: None (occurrence: None)
  Receive Date: 20081222
  Receipt Date: 20081217
  Transmission Date: 20090506
  Serious: Yes (Hospitalization)
  Sender: FDA-Public Use
  Company Number: 1000001683

PATIENT
  Age: 83 Year
  Sex: Female

DRUGS (10)
  1. LEXAPRO [Suspect]
     Indication: DEPRESSION
     Dosage: 10 MG (10 MG, 1 IN 1 D), ORAL
     Route: 048
     Dates: start: 20080221
  2. COUMADIN [Suspect]
     Indication: AORTIC VALVE REPLACEMENT
     Dosage: (2.5 MG), ORAL
     Route: 048
     Dates: start: 19950101
  3. TORSEMIDE (10 MILLIGRAM) [Concomitant]
  4. NADOLOL (20 MILLIGRAM) [Concomitant]
  5. POTASSIUM (10 MILLIEQUIVALENTS) [Concomitant]
  6. CLONIDINE (0.1 MILLIGRAM) [Concomitant]
  7. MECLIZINE [Concomitant]
  8. MONOPRIL [Concomitant]
  9. NEURONTIN [Concomitant]
  10. VITAMINS (NOS) [Concomitant]

REACTIONS (6)
  - ANAEMIA [None]
  - DIZZINESS [None]
  - GASTRIC ULCER [None]
  - INTERNATIONAL NORMALISED RATIO INCREASED [None]
  - UPPER GASTROINTESTINAL HAEMORRHAGE [None]
  - WHITE BLOOD CELL COUNT INCREASED [None]
